FAERS Safety Report 7413951-0 (Version None)
Quarter: 2011Q2

REPORT INFORMATION
  Report Type: 
  Country: None (occurrence: None)
  Receive Date: 20110414
  Receipt Date: 20110405
  Transmission Date: 20111010
  Serious: Yes (Hospitalization)
  Sender: FDA-Public Use
  Company Number: US-BIOGENIDEC-2010BI040162

PATIENT
  Age: 51 Year
  Sex: Female
  Weight: 68 kg

DRUGS (1)
  1. TYSABRI [Suspect]
     Indication: MULTIPLE SCLEROSIS
     Route: 042
     Dates: start: 20100802

REACTIONS (5)
  - LOSS OF CONTROL OF LEGS [None]
  - GAIT DISTURBANCE [None]
  - DRUG INEFFECTIVE [None]
  - PYELONEPHRITIS [None]
  - CYSTITIS [None]
